FAERS Safety Report 8474884-4 (Version None)
Quarter: 2012Q2

REPORT INFORMATION
  Report Type: 
  Country: None (occurrence: None)
  Receive Date: 20120628
  Receipt Date: 20120626
  Transmission Date: 20120825
  Serious: No
  Sender: FDA-Public Use
  Company Number: US-BAYER-2012-063647

PATIENT
  Age: 63 Year
  Sex: Female
  Weight: 86 kg

DRUGS (19)
  1. EFFEXOR [Concomitant]
     Dosage: 25 MG, UNK
  2. FIORICET [Concomitant]
  3. NEXIUM [Concomitant]
  4. MECLIZINE [Concomitant]
     Dosage: 25 MG, UNK
  5. VITAMIN B12 NOS [Concomitant]
     Dosage: 1000CR
  6. ARICEPT [Concomitant]
     Dosage: 5 MG, UNK
  7. TRAZODONE HCL [Concomitant]
     Dosage: 50 MG, UNK
  8. SEROQUEL [Concomitant]
     Dosage: 25 MG, UNK
  9. XANAX [Concomitant]
     Dosage: 0.25 MG, UNK
  10. TENORMIN [Concomitant]
     Dosage: 25 MG, UNK
  11. PROVIGIL [Concomitant]
     Dosage: 100 MG, UNK
  12. BETASERON [Suspect]
     Dosage: 1 ML, QOD
     Route: 058
  13. NORVASC [Concomitant]
     Dosage: 2.5 MG, UNK
  14. ABILIFY [Concomitant]
     Dosage: 15 MG, UNK
  15. VITAMIN D [Concomitant]
     Dosage: 400UNK
  16. NAMENDA [Concomitant]
     Dosage: 10 MG, UNK
  17. OXYCODONE HCL [Concomitant]
     Dosage: 20 MG/ML
  18. PEPCID AC [Concomitant]
     Dosage: 10 MG, UNK
  19. ZETIA [Concomitant]
     Dosage: 10 MG, UNK

REACTIONS (1)
  - INJECTION SITE ERYTHEMA [None]
